FAERS Safety Report 6921746-7 (Version None)
Quarter: 2010Q3

REPORT INFORMATION
  Report Type: 
  Country: None (occurrence: None)
  Receive Date: 20100812
  Receipt Date: 20100803
  Transmission Date: 20110219
  Serious: Yes (Hospitalization)
  Sender: FDA-Public Use
  Company Number: US-ASTRAZENECA-2010SE31052

PATIENT
  Age: 90 Year
  Sex: Female
  Weight: 53.5 kg

DRUGS (1)
  1. SYMBICORT [Suspect]
     Dosage: 320 MCGS TWO PUFFS
     Route: 055

REACTIONS (2)
  - COMPRESSION FRACTURE [None]
  - FALL [None]
